FAERS Safety Report 5220042-6 (Version None)
Quarter: 2006Q4

REPORT INFORMATION
  Report Type: 
  Country: None (occurrence: None)
  Receive Date: 20061121
  Receipt Date: 20060725
  Transmission Date: 20070319
  Serious: No
  Sender: FDA-Public Use
  Company Number: TPA2006A01199

PATIENT
  Age: 75 Year
  Sex: Female
  Weight: 52.1637 kg

DRUGS (6)
  1. ROZEREM [Suspect]
     Indication: INSOMNIA
     Dosage: 8 MG, HS, PER ORAL
     Route: 048
     Dates: start: 20060724
  2. TOPROL-XL [Concomitant]
  3. VERAPAMIL ER (VERAPAMIL) [Concomitant]
  4. DIOVAN HCT [Concomitant]
  5. SYNTHROID [Concomitant]
  6. FOSAMAX [Concomitant]

REACTIONS (4)
  - FATIGUE [None]
  - INITIAL INSOMNIA [None]
  - MIDDLE INSOMNIA [None]
  - POOR QUALITY SLEEP [None]
